FAERS Safety Report 15273365 (Version 3)
Quarter: 2018Q4

REPORT INFORMATION
  Report Type: Report from Study
  Country: US (occurrence: US)
  Receive Date: 20180813
  Receipt Date: 20181126
  Transmission Date: 20190204
  Serious: Yes (Hospitalization, Other)
  Sender: FDA-Public Use
  Company Number: US-SHIRE-US201831174

PATIENT
  Age: 54 Year
  Sex: Male
  Weight: 78.91 kg

DRUGS (1)
  1. GATTEX [Suspect]
     Active Substance: TEDUGLUTIDE\WATER
     Indication: SHORT-BOWEL SYNDROME
     Dosage: 0.422 ML, 1X/DAY:QD
     Route: 050
     Dates: start: 20160913

REACTIONS (6)
  - Coagulopathy [Unknown]
  - Small intestinal obstruction [Recovered/Resolved]
  - Tooth disorder [Unknown]
  - Haemorrhage [Unknown]
  - Weight decreased [Unknown]
  - Nephrolithiasis [Recovered/Resolved]

NARRATIVE: CASE EVENT DATE: 20180713
